FAERS Safety Report 5100516-9 (Version None)
Quarter: 2006Q3

REPORT INFORMATION
  Report Type: 
  Country: None (occurrence: None)
  Receive Date: 20060907
  Receipt Date: 20060907
  Transmission Date: 20061208
  Serious: Yes (Other)
  Sender: FDA-Public Use
  Company Number: None

PATIENT
  Age: 51 Year
  Sex: Female
  Weight: 55.7924 kg

DRUGS (1)
  1. AVELOX [Suspect]
     Indication: BRONCHOPNEUMONIA
     Dosage: 400 MG 1 QD X 7 DAYS PO
     Route: 048
     Dates: start: 20060811, end: 20060818

REACTIONS (6)
  - ARTHRALGIA [None]
  - GAIT DISTURBANCE [None]
  - HYPOAESTHESIA [None]
  - JOINT SWELLING [None]
  - PAIN [None]
  - RASH ERYTHEMATOUS [None]
